FAERS Safety Report 5515045-8 (Version None)
Quarter: 2007Q4

REPORT INFORMATION
  Report Type: 
  Country: None (occurrence: None)
  Receive Date: 20071113
  Receipt Date: 20061128
  Transmission Date: 20080405
  Serious: No
  Sender: FDA-Public Use
  Company Number: A0629015A

PATIENT
  Age: 85 Year
  Sex: Male

DRUGS (10)
  1. COREG [Suspect]
     Indication: DRUG USE FOR UNKNOWN INDICATION
     Dosage: 6.25MG TWICE PER DAY
     Route: 048
  2. NORVASC [Concomitant]
  3. DICLOFENAC SODIUM [Concomitant]
  4. DOXYCYCLINE [Concomitant]
  5. PRAVACHOL [Concomitant]
  6. FLOMAX [Concomitant]
  7. VITAMINS [Concomitant]
  8. GLUCOSAMINE + CHONDROITIN [Concomitant]
  9. FLAX SEED OIL [Concomitant]
  10. OMEGA 3 [Concomitant]

REACTIONS (5)
  - BLOOD PRESSURE INADEQUATELY CONTROLLED [None]
  - COUGH [None]
  - HEART RATE DECREASED [None]
  - PARANASAL SINUS HYPERSECRETION [None]
  - SPEECH DISORDER [None]
